FAERS Safety Report 7879852 (Version 4)
Quarter: 2013Q4

REPORT INFORMATION
  Report Type: Spontaneous
  Country: US (occurrence: US)
  Receive Date: 20110331
  Receipt Date: 20131224
  Transmission Date: 20140711
  Serious: Yes (Other)
  Sender: FDA-Public Use
  Company Number: PHHY2011US23573

PATIENT
  Age: 32 Year
  Sex: Male

DRUGS (2)
  1. EXJADE (*CGP 72670*) [Suspect]
     Indication: APLASTIC ANAEMIA
     Route: 048
     Dates: end: 20110310
  2. STEROIDS (NO INGREDIENTS/SUBSTANCES) [Concomitant]

REACTIONS (7)
  - Haematochezia [Unknown]
  - Nausea [Unknown]
  - Abdominal pain [Recovered/Resolved]
  - Abdominal pain upper [Unknown]
  - Dyspepsia [Recovered/Resolved]
  - Vomiting [Recovered/Resolved]
  - Diarrhoea [Unknown]
